FAERS Safety Report 9158207 (Version 1)
Quarter: 2013Q1

REPORT INFORMATION
  Report Type: Spontaneous
  Country: AR (occurrence: AR)
  Receive Date: 20130312
  Receipt Date: 20130312
  Transmission Date: 20140127
  Serious: Yes (Other)
  Sender: FDA-Public Use
  Company Number: AR-B.I. PHARMACEUTICALS,INC./RIDGEFIELD-2007-DE-01417GD

PATIENT
  Sex: Male

DRUGS (7)
  1. PRAMIPEXOLE [Suspect]
     Indication: PARKINSON^S DISEASE
     Dosage: 9 MG
  2. AMANTADINE [Suspect]
     Indication: PARKINSON^S DISEASE
     Dosage: 200 MG
  3. LEVODOPA [Suspect]
     Indication: PARKINSON^S DISEASE
     Dates: start: 1994
  4. LEVODOPA [Suspect]
     Dosage: 600 MG
  5. CABERGOLINE [Suspect]
     Indication: PARKINSON^S DISEASE
     Dosage: 12 MG
     Dates: start: 200303
  6. APOMORPHINE [Suspect]
     Indication: PARKINSON^S DISEASE
     Route: 058
  7. APOMORPHINE [Suspect]
     Dosage: 6 OR 9 MG
     Route: 058

REACTIONS (3)
  - Camptocormia [Unknown]
  - Oedema peripheral [Unknown]
  - Drug ineffective [Unknown]
